FAERS Safety Report 10793380 (Version 1)
Quarter: 2015Q1

REPORT INFORMATION
  Report Type: Spontaneous
  Country: GB (occurrence: GB)
  Receive Date: 20150213
  Receipt Date: 20150213
  Transmission Date: 20150721
  Serious: Yes (Hospitalization, Other)
  Sender: FDA-Public Use
  Company Number: GB-JNJFOC-20150203713

PATIENT
  Age: 29 Year
  Sex: Male

DRUGS (2)
  1. DARUNAVIR [Suspect]
     Active Substance: DARUNAVIR
     Indication: HIV INFECTION
     Route: 048
  2. RITONAVIR. [Suspect]
     Active Substance: RITONAVIR
     Indication: HIV INFECTION
     Route: 065

REACTIONS (7)
  - Slow speech [Unknown]
  - Hallucination [Recovered/Resolved]
  - Hallucination, auditory [Recovering/Resolving]
  - Suicide attempt [Unknown]
  - Depression [Unknown]
  - Paranoia [Unknown]
  - Decreased eye contact [Unknown]
